FAERS Safety Report 21417258 (Version 1)
Quarter: 2022Q4

REPORT INFORMATION
  Report Type: Spontaneous
  Country: US (occurrence: US)
  Receive Date: 20221006
  Receipt Date: 20221006
  Transmission Date: 20230113
  Serious: Yes (Other)
  Sender: FDA-Public Use
  Company Number: US-BioHaven Pharmaceuticals-2022BHV002607

PATIENT
  Age: 52 Year
  Sex: Female

DRUGS (1)
  1. NURTEC ODT [Suspect]
     Active Substance: RIMEGEPANT SULFATE
     Indication: Prophylaxis
     Dosage: FIRST PRESCRIBED NURTEC FOR ACUTE USE. PROVIDER PRESCRIBED NURTEC FOR PREVENTATIVE USE.
     Route: 065

REACTIONS (2)
  - Breast cancer [Unknown]
  - Drug ineffective [Unknown]
